FAERS Safety Report 20809826 (Version 1)
Quarter: 2022Q2

REPORT INFORMATION
  Report Type: Spontaneous
  Country: US (occurrence: None)
  Receive Date: 20220510
  Receipt Date: 20220510
  Transmission Date: 20220721
  Serious: Yes (Other)
  Sender: FDA-Public Use
  Company Number: None

PATIENT
  Age: 47 Year
  Weight: 94.5 kg

DRUGS (2)
  1. ZICAM COLD REMEDY [Suspect]
     Active Substance: HOMEOPATHICS\ZINC ACETATE\ZINC GLUCONATE
     Indication: Nasopharyngitis
     Dosage: FREQUENCY : DAILY;?
     Route: 048
     Dates: start: 20220507, end: 20220509
  2. ZICAM COLD REMEDY [Concomitant]
     Active Substance: HOMEOPATHICS\ZINC ACETATE\ZINC GLUCONATE
     Dates: start: 20220507, end: 20220509

REACTIONS (11)
  - Anxiety [None]
  - Tongue dry [None]
  - Heart rate increased [None]
  - Heart rate irregular [None]
  - Tinnitus [None]
  - Dyspnoea [None]
  - Sinus disorder [None]
  - Insomnia [None]
  - Feeling hot [None]
  - Increased viscosity of upper respiratory secretion [None]
  - Nasal discharge discolouration [None]

NARRATIVE: CASE EVENT DATE: 20220510
